FAERS Safety Report 9905330 (Version 2)
Quarter: 2014Q1

REPORT INFORMATION
  Report Type: Other
  Country: FR (occurrence: FR)
  Receive Date: 20140218
  Receipt Date: 20140224
  Transmission Date: 20141002
  Serious: Yes (Death, Life-Threatening, Hospitalization, Other)
  Sender: FDA-Public Use
  Company Number: FR-CUBIST PHARMACEUTICAL, INC.-2014CBST000188

PATIENT
  Sex: 0

DRUGS (17)
  1. CUBICIN [Suspect]
     Indication: PRODUCT USED FOR UNKNOWN INDICATION
     Dosage: 420 MG, QD
     Route: 042
     Dates: start: 20140103, end: 20140107
  2. CICLOSPORINE [Suspect]
     Indication: PRODUCT USED FOR UNKNOWN INDICATION
     Dosage: 220 MG, QD
     Route: 042
     Dates: start: 20131214, end: 20140105
  3. CEFEPIME [Suspect]
     Indication: PRODUCT USED FOR UNKNOWN INDICATION
     Dosage: 2 G, TID
     Route: 042
     Dates: start: 20131224, end: 20131229
  4. INEXIUM /01479302/ [Suspect]
     Indication: PRODUCT USED FOR UNKNOWN INDICATION
     Dosage: 20 MG, QD
     Route: 048
     Dates: start: 20131205, end: 20140111
  5. VANCOMYCIN [Suspect]
     Indication: PRODUCT USED FOR UNKNOWN INDICATION
     Dosage: 2.5 G, QD (5 DOSEFORMS DAILY)
     Route: 042
     Dates: start: 20131224, end: 20140102
  6. TAZOCILLINE [Suspect]
     Indication: PRODUCT USED FOR UNKNOWN INDICATION
     Dosage: (4G/500 MG) 1DF QID
     Route: 042
     Dates: start: 20131230, end: 20140103
  7. HEPARIN CHOAY [Suspect]
     Indication: PRODUCT USED FOR UNKNOWN INDICATION
     Dosage: 7000 IU, QD
     Route: 058
     Dates: start: 20131224, end: 20140108
  8. AMIKACIDE [Suspect]
     Indication: PRODUCT USED FOR UNKNOWN INDICATION
     Dosage: 1750 MG, QD
     Route: 042
     Dates: start: 20131226, end: 20131230
  9. ZELITREX [Suspect]
     Indication: PRODUCT USED FOR UNKNOWN INDICATION
     Dosage: 2 DF, TID
     Route: 065
     Dates: start: 20131203, end: 20140112
  10. NOXAFIL [Suspect]
     Indication: PRODUCT USED FOR UNKNOWN INDICATION
     Dosage: (40 MG/ML) 300 MG, TID
     Route: 048
     Dates: start: 20131205, end: 20140109
  11. FLAGYL                             /00012501/ [Concomitant]
     Indication: DIVERTICULITIS
     Dosage: UNK UNK, UNK
     Route: 065
     Dates: start: 20140103, end: 20140103
  12. SOLU-MEDROL [Concomitant]
     Indication: PRODUCT USED FOR UNKNOWN INDICATION
     Dosage: UNK UNK, UNK
     Route: 065
     Dates: start: 20131214, end: 20140102
  13. MOTILIUM                           /00498201/ [Concomitant]
     Indication: PRODUCT USED FOR UNKNOWN INDICATION
     Dosage: UNK UNK, UNK
     Route: 065
     Dates: start: 20131218, end: 20131224
  14. TIENAM [Concomitant]
     Indication: PRODUCT USED FOR UNKNOWN INDICATION
     Dosage: UNK UNK, UNK
     Route: 065
     Dates: start: 20131206, end: 20131220
  15. OROKEN [Concomitant]
     Indication: DIVERTICULITIS
     Dosage: UNK, UNK, UNK
     Route: 065
     Dates: start: 201311
  16. ATGAM [Concomitant]
     Indication: PRODUCT USED FOR UNKNOWN INDICATION
     Dosage: UNK UNK, UNK
     Route: 065
     Dates: start: 20131214, end: 20131217
  17. OFLOCET                            /00731801/ [Concomitant]
     Indication: PRODUCT USED FOR UNKNOWN INDICATION
     Dosage: UNK UNK, UNK
     Route: 065
     Dates: start: 201312, end: 20131220

REACTIONS (16)
  - Circulatory collapse [Fatal]
  - Septic shock [Unknown]
  - Platelet count decreased [Unknown]
  - Bacteraemia [Unknown]
  - Inflammation [Unknown]
  - Diffuse cutaneous mastocytosis [Unknown]
  - Pyrexia [Unknown]
  - C-reactive protein increased [Unknown]
  - Confusional state [Unknown]
  - Generalised oedema [Unknown]
  - Skin necrosis [Unknown]
  - Skin mass [Unknown]
  - Myalgia [Unknown]
  - Hypoalbuminaemia [Unknown]
  - Therapy cessation [Unknown]
  - Generalised oedema [Unknown]
